FAERS Safety Report 25121456 (Version 1)
Quarter: 2025Q1

REPORT INFORMATION
  Report Type: Spontaneous
  Country: US (occurrence: US)
  Receive Date: 20250326
  Receipt Date: 20250326
  Transmission Date: 20250408
  Serious: Yes (Other)
  Sender: JOHNSON AND JOHNSON
  Company Number: US-JNJFOC-20250348869

PATIENT
  Sex: Male

DRUGS (1)
  1. ERLEADA [Suspect]
     Active Substance: APALUTAMIDE
     Indication: Product used for unknown indication
     Route: 048

REACTIONS (7)
  - Aortic arteriosclerosis [Unknown]
  - Botulinum toxin injection [Unknown]
  - Bladder spasm [Unknown]
  - Fatigue [Unknown]
  - Scar [Unknown]
  - Urinary tract infection [Unknown]
  - Dysuria [Unknown]
